FAERS Safety Report 5109141-7 (Version None)
Quarter: 2006Q3

REPORT INFORMATION
  Report Type: 
  Country: None (occurrence: None)
  Receive Date: 20060920
  Receipt Date: 20060908
  Transmission Date: 20061208
  Serious: Yes (Hospitalization)
  Sender: FDA-Public Use
  Company Number: US-AMGEN-US193297

PATIENT
  Sex: Female
  Weight: 71.7 kg

DRUGS (2)
  1. PROCRIT [Suspect]
     Indication: ANAEMIA OF MALIGNANT DISEASE
     Route: 065
     Dates: start: 20060501, end: 20060801
  2. DIURETICS [Concomitant]
     Dates: start: 20060101

REACTIONS (5)
  - DIARRHOEA [None]
  - DIZZINESS [None]
  - HOSPITALISATION [None]
  - LOSS OF CONSCIOUSNESS [None]
  - NAUSEA [None]
